FAERS Safety Report 16392635 (Version 2)
Quarter: 2019Q4

REPORT INFORMATION
  Report Type: Spontaneous
  Country: BR (occurrence: BR)
  Receive Date: 20190605
  Receipt Date: 20191022
  Transmission Date: 20200122
  Serious: Yes (Other)
  Sender: FDA-Public Use
  Company Number: BR-ABBVIE-19P-020-2806267-00

PATIENT
  Age: 34 Year
  Sex: Female
  Weight: 60 kg

DRUGS (7)
  1. DEPAKENE [Suspect]
     Active Substance: VALPROIC ACID
     Indication: PSYCHIATRIC SYMPTOM
     Route: 048
     Dates: start: 201110
  2. CLONAZEPAM. [Concomitant]
     Active Substance: CLONAZEPAM
     Indication: SLEEP DISORDER
  3. OLANZAPINE. [Suspect]
     Active Substance: OLANZAPINE
     Indication: RESTLESSNESS
     Dosage: DOSE DOUBLED DUE TO PATIENT WANTING TO FIGHT AND KILL OTHER PEOPLE
     Route: 048
  4. CLONAZEPAM. [Concomitant]
     Active Substance: CLONAZEPAM
     Indication: ILL-DEFINED DISORDER
  5. DEPAKENE [Suspect]
     Active Substance: VALPROIC ACID
     Indication: BIPOLAR DISORDER
     Route: 048
  6. DEPAKENE [Suspect]
     Active Substance: VALPROIC ACID
     Indication: INSOMNIA
  7. OLANZAPINE. [Suspect]
     Active Substance: OLANZAPINE
     Indication: SLEEP DISORDER
     Route: 048
     Dates: start: 2016

REACTIONS (27)
  - Waist circumference increased [Unknown]
  - Loss of libido [Unknown]
  - Abdominal distension [Unknown]
  - Memory impairment [Unknown]
  - Unevaluable event [Unknown]
  - Abdominal pain [Unknown]
  - Mood altered [Unknown]
  - Homicidal ideation [Unknown]
  - Migraine [Unknown]
  - Eating disorder [Unknown]
  - Fatigue [Unknown]
  - Hypoacusis [Unknown]
  - Alopecia [Not Recovered/Not Resolved]
  - Dyspepsia [Unknown]
  - Hyperphagia [Unknown]
  - Vaginal discharge [Unknown]
  - Aggression [Unknown]
  - Weight increased [Not Recovered/Not Resolved]
  - Oral administration complication [Unknown]
  - Suicide attempt [Unknown]
  - Product use in unapproved indication [Unknown]
  - Stress [Unknown]
  - Poor quality sleep [Unknown]
  - Food intolerance [Unknown]
  - Anxiety [Unknown]
  - Headache [Unknown]
  - Constipation [Unknown]

NARRATIVE: CASE EVENT DATE: 201112
